FAERS Safety Report 18404761 (Version 1)
Quarter: 2020Q4

REPORT INFORMATION
  Report Type: Spontaneous
  Country: US (occurrence: US)
  Receive Date: 20201020
  Receipt Date: 20201020
  Transmission Date: 20210114
  Serious: No
  Sender: FDA-Public Use
  Company Number: None

PATIENT
  Age: 71 Year
  Sex: Male
  Weight: 88.45 kg

DRUGS (11)
  1. FLUXETINE [Concomitant]
  2. ATORVASTATIN CALCIUM. [Concomitant]
     Active Substance: ATORVASTATIN CALCIUM
  3. VALSARTAN. [Concomitant]
     Active Substance: VALSARTAN
  4. CENTRUM SILVER [Concomitant]
     Active Substance: MINERALS\VITAMINS
  5. VITAMIN B COMPLEX [Concomitant]
     Active Substance: CYANOCOBALAMIN\DEXPANTHENOL\NIACINAMIDE\PYRIDOXINE HYDROCHLORIDE\RIBOFLAVIN 5^-PHOSPHATE SODIUM\THIAMINE HYDROCHLORIDE\VITAMIN B COMPLEX
  6. FIRMAGON [Suspect]
     Active Substance: DEGARELIX ACETATE
  7. METOPROLOL TARTRATE. [Concomitant]
     Active Substance: METOPROLOL TARTRATE
  8. ASPIRIN. [Concomitant]
     Active Substance: ASPIRIN
  9. PRPSTEON + D3 CALCIUM SUPPLEMENT [Concomitant]
  10. XGEVA [Suspect]
     Active Substance: DENOSUMAB
     Indication: METASTATIC BONE DISEASE PROPHYLAXIS
     Route: 058
     Dates: start: 201812, end: 201912
  11. TUMERIC [Concomitant]
     Active Substance: HERBALS\TURMERIC

REACTIONS (2)
  - Osteonecrosis of jaw [None]
  - Tooth abscess [None]

NARRATIVE: CASE EVENT DATE: 20190625
